FAERS Safety Report 9895366 (Version 1)
Quarter: 2014Q1

REPORT INFORMATION
  Report Type: Spontaneous
  Country: US (occurrence: US)
  Receive Date: 20140213
  Receipt Date: 20140213
  Transmission Date: 20141002
  Serious: No
  Sender: FDA-Public Use
  Company Number: US-BRISTOL-MYERS SQUIBB COMPANY-19391473

PATIENT
  Age: 51 Year
  Sex: Female
  Weight: 112.47 kg

DRUGS (10)
  1. ABATACEPT SUBQ INJECTION 125MG/ML [Suspect]
     Dosage: 1DF:125 MG/ML
     Route: 058
  2. METHOTREXATE TABS [Concomitant]
  3. XELJANZ [Concomitant]
     Dosage: TAB
  4. NABUMETONE [Concomitant]
     Dosage: TAB
  5. METFORMIN [Concomitant]
     Dosage: TAB
  6. METOPROLOL [Concomitant]
     Dosage: TAB 25MG ER
  7. PHENTERMINE [Concomitant]
     Dosage: CAPS
  8. LOSARTAN POTASSIUM [Concomitant]
     Dosage: TAB
  9. VITAMIN D [Concomitant]
     Dosage: 1DF:CAP 400UNIT
  10. MULTIVITAMIN [Concomitant]
     Dosage: CAP

REACTIONS (1)
  - Drug ineffective [Unknown]
